FAERS Safety Report 6770680-4 (Version None)
Quarter: 2010Q2

REPORT INFORMATION
  Report Type: 
  Country: None (occurrence: None)
  Receive Date: 20100615
  Receipt Date: 20100607
  Transmission Date: 20101027
  Serious: Yes (Other)
  Sender: FDA-Public Use
  Company Number: US-AMGEN-QUU414273

PATIENT
  Sex: Female

DRUGS (8)
  1. ENBREL [Suspect]
     Indication: PSORIASIS
     Route: 058
     Dates: start: 20080811, end: 20100421
  2. ACTONEL [Concomitant]
  3. LISINOPRIL [Concomitant]
  4. VERAPAMIL [Concomitant]
  5. LOVAZA [Concomitant]
  6. GINGKO BILOBA [Concomitant]
  7. CITRACAL [Concomitant]
  8. SORIATANE [Concomitant]
     Dates: start: 20080805, end: 20080915

REACTIONS (3)
  - CHRONIC MYELOID LEUKAEMIA [None]
  - HIV TEST FALSE POSITIVE [None]
  - THROMBOCYTOSIS [None]
